FAERS Safety Report 8056161-9 (Version None)
Quarter: 2012Q1

REPORT INFORMATION
  Report Type: 
  Country: None (occurrence: None)
  Receive Date: 20120119
  Receipt Date: 20120113
  Transmission Date: 20120608
  Serious: No
  Sender: FDA-Public Use
  Company Number: US-BAYER-2012-005531

PATIENT
  Age: 76 Year
  Sex: Female
  Weight: 68 kg

DRUGS (2)
  1. 5 HEART MEDICATIONS. [Concomitant]
  2. ALEVE (CAPLET) [Suspect]
     Indication: HEADACHE
     Dosage: 2 TABLETS AS NEEDED - 130 COUNT
     Route: 048
     Dates: start: 20120101, end: 20120113

REACTIONS (3)
  - VOMITING [None]
  - NAUSEA [None]
  - SALIVARY HYPERSECRETION [None]
